APPROVED DRUG PRODUCT: FENOFIBRATE
Active Ingredient: FENOFIBRATE
Strength: 40MG
Dosage Form/Route: TABLET;ORAL
Application: A204475 | Product #001 | TE Code: AB
Applicant: MYLAN PHARMACEUTICALS INC
Approved: Jun 23, 2016 | RLD: No | RS: No | Type: RX